FAERS Safety Report 11494424 (Version 13)
Quarter: 2016Q4

REPORT INFORMATION
  Report Type: Report from Study
  Country: LB (occurrence: LB)
  Receive Date: 20150911
  Receipt Date: 20161214
  Transmission Date: 20170206
  Serious: Yes (Hospitalization)
  Sender: FDA-Public Use
  Company Number: PHHY2015LB102058

PATIENT
  Age: 33 Year
  Sex: Female

DRUGS (6)
  1. PREDNISONE. [Suspect]
     Active Substance: PREDNISONE
     Indication: BLOOD POTASSIUM INCREASED
     Dosage: UNK
     Route: 065
  2. ADENURIC [Concomitant]
     Active Substance: FEBUXOSTAT
     Indication: PRODUCT USED FOR UNKNOWN INDICATION
     Dosage: 1 DF, QD
     Route: 048
     Dates: start: 201508
  3. OMEDAR [Concomitant]
     Indication: PRODUCT USED FOR UNKNOWN INDICATION
     Dosage: SOS
     Route: 048
  4. EUROFER (FOLIC ACID\IRON) [Concomitant]
     Active Substance: FOLIC ACID\IRON
     Indication: PRODUCT USED FOR UNKNOWN INDICATION
     Dosage: 1 DF, QD
     Route: 048
     Dates: start: 201601
  5. TASIGNA [Suspect]
     Active Substance: NILOTINIB
     Indication: CHRONIC MYELOID LEUKAEMIA
     Dosage: 600 MG, QD
     Route: 048
     Dates: start: 20150818
  6. DORIXINA//CLONIXIN LYSINATE [Concomitant]
     Indication: PRODUCT USED FOR UNKNOWN INDICATION
     Dosage: SOS
     Route: 048

REACTIONS (31)
  - Erythema [Unknown]
  - Bone pain [Recovered/Resolved]
  - Cytogenetic analysis abnormal [Not Recovered/Not Resolved]
  - Fatigue [Recovering/Resolving]
  - Ocular hyperaemia [Recovering/Resolving]
  - Petechiae [Unknown]
  - Tachycardia [Recovered/Resolved]
  - Drug ineffective [Unknown]
  - Granuloma skin [Recovered/Resolved]
  - Weight decreased [Not Recovered/Not Resolved]
  - Menorrhagia [Recovering/Resolving]
  - Blood potassium decreased [Unknown]
  - Tremor [Unknown]
  - Thrombocytopenia [Recovered/Resolved]
  - Menstruation delayed [Not Recovered/Not Resolved]
  - Blood iron decreased [Unknown]
  - Alopecia [Not Recovered/Not Resolved]
  - Weight increased [Not Recovered/Not Resolved]
  - Anaemia [Recovering/Resolving]
  - Hypertension [Recovered/Resolved]
  - Anxiety [Not Recovered/Not Resolved]
  - Night sweats [Recovered/Resolved]
  - Influenza [Recovered/Resolved]
  - Arthralgia [Not Recovered/Not Resolved]
  - Fluid retention [Unknown]
  - Blood bilirubin increased [Recovered/Resolved]
  - Wound [Recovered/Resolved]
  - Vitamin D decreased [Not Recovered/Not Resolved]
  - Complication of pregnancy [Not Recovered/Not Resolved]
  - Menorrhagia [Recovered/Resolved]
  - Hyperglycaemia [Recovered/Resolved]

NARRATIVE: CASE EVENT DATE: 20150819
